FAERS Safety Report 8148194 (Version 2)
Quarter: 2014Q3

REPORT INFORMATION
  Report Type: Report from Study
  Country: US (occurrence: US)
  Receive Date: 20110922
  Receipt Date: 20140711
  Transmission Date: 20150326
  Serious: No
  Sender: FDA-Public Use
  Company Number: US-ASTRAZENECA-2010SE44281

PATIENT
  Age: 54 Year
  Sex: Female

DRUGS (4)
  1. SEROQUEL [Suspect]
     Active Substance: QUETIAPINE FUMARATE
     Indication: SLEEP DISORDER
     Route: 048
  2. SEROQUEL [Suspect]
     Active Substance: QUETIAPINE FUMARATE
     Indication: SLEEP DISORDER
     Route: 048
  3. LOVASTATIN. [Concomitant]
     Active Substance: LOVASTATIN
     Indication: BLOOD CHOLESTEROL ABNORMAL
     Route: 048
  4. BESCLERE [Concomitant]
     Indication: BLADDER DISORDER
     Route: 048
     Dates: start: 2013

REACTIONS (6)
  - Abdominal discomfort [Unknown]
  - Off label use [Unknown]
  - Malaise [Unknown]
  - Intentional product misuse [Unknown]
  - Weight decreased [Unknown]
  - Drug dose omission [Unknown]
